FAERS Safety Report 7705078-5 (Version None)
Quarter: 2011Q3

REPORT INFORMATION
  Report Type: 
  Country: None (occurrence: None)
  Receive Date: 20110823
  Receipt Date: 20110808
  Transmission Date: 20111222
  Serious: Yes (Other)
  Sender: FDA-Public Use
  Company Number: US-JNJFOC-20110804695

PATIENT
  Sex: Male
  Weight: 71.67 kg

DRUGS (7)
  1. REMICADE [Suspect]
     Indication: CROHN'S DISEASE
     Route: 042
     Dates: start: 20040101
  2. OCUVITE NOS [Concomitant]
  3. NIACIN [Concomitant]
     Indication: MEDICAL DIET
     Route: 048
  4. PENTASA [Concomitant]
     Indication: GASTROINTESTINAL INFLAMMATION
     Route: 048
  5. CIPROFLOXACIN [Concomitant]
     Indication: INFECTION
     Route: 048
  6. VITAMIN B-12 [Concomitant]
     Indication: MEDICAL DIET
     Route: 048
  7. HUMIRA [Suspect]
     Indication: CROHN'S DISEASE
     Route: 058

REACTIONS (5)
  - PLATELET COUNT DECREASED [None]
  - BLOOD SODIUM DECREASED [None]
  - BLOOD ALBUMIN DECREASED [None]
  - HAEMOGLOBIN DECREASED [None]
  - LEUKOPENIA [None]
